FAERS Safety Report 6438552-2 (Version None)
Quarter: 2009Q4

REPORT INFORMATION
  Report Type: 
  Country: None (occurrence: None)
  Receive Date: 20091112
  Receipt Date: 20090818
  Transmission Date: 20100525
  Serious: No
  Sender: FDA-Public Use
  Company Number: US-ALLERGAN-0911472US

PATIENT
  Age: 70 Year
  Sex: Female

DRUGS (6)
  1. COMBIGAN [Suspect]
     Indication: OCULAR NEOPLASM
     Dosage: UNK
     Route: 047
     Dates: start: 20090803, end: 20090818
  2. COMBIGAN [Suspect]
     Indication: INTRAOCULAR PRESSURE INCREASED
  3. XALATAN [Concomitant]
     Indication: OCULAR NEOPLASM
     Dosage: UNK
  4. XALATAN [Concomitant]
     Indication: INTRAOCULAR PRESSURE INCREASED
  5. DIAMOX SRC [Concomitant]
     Indication: OCULAR NEOPLASM
     Dosage: 500 MG, BID
  6. DIAMOX SRC [Concomitant]
     Indication: INTRAOCULAR PRESSURE INCREASED

REACTIONS (2)
  - EYE IRRITATION [None]
  - EYE PAIN [None]
